FAERS Safety Report 22148708 (Version 15)
Quarter: 2024Q4

REPORT INFORMATION
  Report Type: Report from Study
  Country: US (occurrence: US)
  Receive Date: 20230328
  Receipt Date: 20241230
  Transmission Date: 20250115
  Serious: Yes (Other)
  Sender: TAKEDA
  Company Number: US-TAKEDA-US201914598

PATIENT
  Age: 55 Year
  Sex: Female
  Weight: 76 kg

DRUGS (43)
  1. HUMAN IMMUNOGLOBULIN G\HYALURONIDASE RECOMBINANT HUMAN [Suspect]
     Active Substance: HUMAN IMMUNOGLOBULIN G\HYALURONIDASE (HUMAN RECOMBINANT)
     Indication: Primary immunodeficiency syndrome
     Dosage: UNK
  2. CUVITRU [Suspect]
     Active Substance: HUMAN IMMUNOGLOBULIN G
     Indication: Immunodeficiency common variable
     Dosage: 16 GRAM, 1/WEEK
  3. CUVITRU [Suspect]
     Active Substance: HUMAN IMMUNOGLOBULIN G
     Dosage: 80 MILLIGRAM
  4. GAMMAGARD LIQUID [Suspect]
     Active Substance: HUMAN IMMUNOGLOBULIN G
     Indication: Immunodeficiency common variable
     Dosage: 400 MILLIGRAM/KILOGRAM
  5. GAMMAGARD LIQUID [Suspect]
     Active Substance: HUMAN IMMUNOGLOBULIN G
     Indication: Primary immunodeficiency syndrome
     Dosage: 500 MILLIGRAM/KILOGRAM
  6. GAMMAGARD LIQUID [Suspect]
     Active Substance: HUMAN IMMUNOGLOBULIN G
     Indication: Myasthenia gravis
     Dosage: 16 GRAM, 1/WEEK
  7. GAMMAGARD LIQUID [Suspect]
     Active Substance: HUMAN IMMUNOGLOBULIN G
     Dosage: 80 GRAM, Q3WEEKS
  8. GAMMAGARD LIQUID [Suspect]
     Active Substance: HUMAN IMMUNOGLOBULIN G
     Dosage: 1000 MILLIGRAM/KILOGRAM, Q3WEEKS
  9. GAMMAGARD LIQUID [Suspect]
     Active Substance: HUMAN IMMUNOGLOBULIN G
     Dosage: 1000 MILLIGRAM/KILOGRAM, Q4WEEKS
  10. ACETAMINOPHEN [Concomitant]
     Active Substance: ACETAMINOPHEN
     Dosage: UNK
  11. EPINEPHRINE [Concomitant]
     Active Substance: EPINEPHRINE
     Dosage: UNK
  12. SODIUM CHLORIDE [Concomitant]
     Active Substance: SODIUM CHLORIDE
     Dosage: UNK
  13. AJOVY [Concomitant]
     Active Substance: FREMANEZUMAB-VFRM
     Dosage: UNK
  14. UBRELVY [Concomitant]
     Active Substance: UBROGEPANT
     Dosage: UNK
  15. VITAMIN D3 [Concomitant]
     Active Substance: CHOLECALCIFEROL
     Dosage: UNK
  16. BREO ELLIPTA [Concomitant]
     Active Substance: FLUTICASONE FUROATE\VILANTEROL TRIFENATATE
     Dosage: UNK
  17. OXCARBAZEPINE [Concomitant]
     Active Substance: OXCARBAZEPINE
     Dosage: UNK
  18. LIDOCAINE [Concomitant]
     Active Substance: LIDOCAINE
     Dosage: UNK
  19. HEPARIN [Concomitant]
     Active Substance: HEPARIN SODIUM
     Dosage: UNK
  20. MESTINON [Concomitant]
     Active Substance: PYRIDOSTIGMINE BROMIDE
     Dosage: UNK
  21. LEVOTHYROXINE SODIUM [Concomitant]
     Active Substance: LEVOTHYROXINE SODIUM
     Dosage: UNK
  22. Lmx [Concomitant]
     Dosage: UNK
  23. DIPHENHYDRAMINE HYDROCHLORIDE [Concomitant]
     Active Substance: DIPHENHYDRAMINE HYDROCHLORIDE
     Dosage: UNK
  24. KLONOPIN [Concomitant]
     Active Substance: CLONAZEPAM
     Dosage: UNK
  25. WELLBUTRIN [Concomitant]
     Active Substance: BUPROPION HYDROCHLORIDE
     Dosage: UNK
  26. ASPIRIN [Concomitant]
     Active Substance: ASPIRIN
     Dosage: UNK
  27. QUETIAPINE FUMARATE [Concomitant]
     Active Substance: QUETIAPINE FUMARATE
     Dosage: UNK
  28. LAMOTRIGINE [Concomitant]
     Active Substance: LAMOTRIGINE
     Dosage: UNK
  29. TIZANIDINE HYDROCHLORIDE [Concomitant]
     Active Substance: TIZANIDINE HYDROCHLORIDE
     Dosage: UNK
  30. HIZENTRA [Concomitant]
     Active Substance: HUMAN IMMUNOGLOBULIN G
     Dosage: UNK
  31. BOTOX [Concomitant]
     Active Substance: ONABOTULINUMTOXINA
     Dosage: UNK
  32. TIZANIDINE [Concomitant]
     Active Substance: TIZANIDINE
     Dosage: UNK
  33. DIPHENHYDRAMINE [Concomitant]
     Active Substance: DIPHENHYDRAMINE
     Dosage: UNK
  34. SEROQUEL [Concomitant]
     Active Substance: QUETIAPINE FUMARATE
  35. SIMVASTATIN [Concomitant]
     Active Substance: SIMVASTATIN
  36. LAMICTAL [Concomitant]
     Active Substance: LAMOTRIGINE
  37. ALBUTEROL [Concomitant]
     Active Substance: ALBUTEROL
  38. VITAMIN D [Concomitant]
     Active Substance: VITAMIN D NOS
  39. LEVOTHYROXINE [Concomitant]
     Active Substance: LEVOTHYROXINE
  40. TRILEPTAL [Concomitant]
     Active Substance: OXCARBAZEPINE
  41. GADOBUTROL [Concomitant]
     Active Substance: GADOBUTROL
  42. BENADRYL [Concomitant]
     Active Substance: DIPHENHYDRAMINE HYDROCHLORIDE
  43. PHENTERMINE [Concomitant]
     Active Substance: PHENTERMINE\PHENTERMINE HYDROCHLORIDE

REACTIONS (29)
  - Myasthenia gravis [Unknown]
  - Pulmonary fibrosis [Unknown]
  - Fall [Unknown]
  - Muscle injury [Unknown]
  - Bone fragmentation [Unknown]
  - Haematoma [Unknown]
  - Respiratory disorder [Unknown]
  - Weight increased [Unknown]
  - Procedural complication [Unknown]
  - Infusion site irritation [Unknown]
  - Urinary incontinence [Unknown]
  - Confusional state [Unknown]
  - Disorientation [Unknown]
  - Urinary tract infection [Unknown]
  - Infusion site discharge [Unknown]
  - Dermatitis contact [Unknown]
  - Illness [Recovering/Resolving]
  - Pulmonary function test decreased [Unknown]
  - Crying [Unknown]
  - Movement disorder [Unknown]
  - Product dose omission issue [Unknown]
  - Rales [Unknown]
  - Diplopia [Unknown]
  - Heart rate increased [Recovering/Resolving]
  - Balance disorder [Unknown]
  - Infusion site haemorrhage [Unknown]
  - Migraine [Unknown]
  - Influenza like illness [Recovering/Resolving]
  - Nausea [Recovered/Resolved]

NARRATIVE: CASE EVENT DATE: 20190502
